FAERS Safety Report 8348913-2 (Version None)
Quarter: 2012Q2

REPORT INFORMATION
  Report Type: 
  Country: None (occurrence: None)
  Receive Date: 20120510
  Receipt Date: 20120503
  Transmission Date: 20120825
  Serious: Yes (Other)
  Sender: FDA-Public Use
  Company Number: DE-BAYER-2012-043367

PATIENT
  Sex: Female

DRUGS (1)
  1. MIRENA [Suspect]
     Indication: PRODUCT USED FOR UNKNOWN INDICATION
     Dosage: 20 ?G/D, CONT
     Route: 015

REACTIONS (14)
  - SECRETION DISCHARGE [None]
  - DEAFNESS NEUROSENSORY [None]
  - LIBIDO DECREASED [None]
  - VISUAL IMPAIRMENT [None]
  - ANXIETY [None]
  - ARRHYTHMIA [None]
  - PARAESTHESIA [None]
  - ABNORMAL WEIGHT GAIN [None]
  - CYST [None]
  - SPEECH DISORDER [None]
  - HOT FLUSH [None]
  - DISTURBANCE IN ATTENTION [None]
  - METRORRHAGIA [None]
  - SLEEP DISORDER [None]
